FAERS Safety Report 12598347 (Version 1)
Quarter: 2016Q3

REPORT INFORMATION
  Report Type: Spontaneous
  Country: CN (occurrence: CN)
  Receive Date: 20160727
  Receipt Date: 20160727
  Transmission Date: 20161109
  Serious: Yes (Hospitalization)
  Sender: FDA-Public Use
  Company Number: CN-JNJFOC-20160718790

PATIENT
  Age: 32 Year
  Sex: Male
  Weight: 63 kg

DRUGS (1)
  1. RISPERIDONE. [Suspect]
     Active Substance: RISPERIDONE
     Indication: PERSONALITY DISORDER
     Dosage: 1ML
     Route: 048
     Dates: start: 20150119, end: 20150122

REACTIONS (4)
  - Salivary hypersecretion [Recovered/Resolved]
  - Skin discomfort [Recovered/Resolved]
  - Tongue disorder [Recovered/Resolved]
  - Dyspnoea [Recovered/Resolved]

NARRATIVE: CASE EVENT DATE: 20150120
